FAERS Safety Report 12253627 (Version 2)
Quarter: 2017Q3

REPORT INFORMATION
  Report Type: Spontaneous
  Country: AU (occurrence: AU)
  Receive Date: 20160411
  Receipt Date: 20170914
  Transmission Date: 20171127
  Serious: Yes (Death, Other)
  Sender: FDA-Public Use
  Company Number: AU-ROCHE-1738336

PATIENT
  Sex: Male

DRUGS (13)
  1. OXYCODONE [Suspect]
     Active Substance: OXYCODONE
     Indication: PRODUCT USED FOR UNKNOWN INDICATION
     Route: 065
  2. OXAZEPAM. [Interacting]
     Active Substance: OXAZEPAM
     Indication: PRODUCT USED FOR UNKNOWN INDICATION
     Route: 065
  3. TEMAZEPAM. [Suspect]
     Active Substance: TEMAZEPAM
     Indication: PRODUCT USED FOR UNKNOWN INDICATION
     Route: 065
  4. DIAZEPAM. [Interacting]
     Active Substance: DIAZEPAM
     Indication: ANXIETY
  5. METHADONE [Interacting]
     Active Substance: METHADONE HYDROCHLORIDE
     Indication: DRUG WITHDRAWAL MAINTENANCE THERAPY
     Route: 065
  6. TRAMADOL. [Interacting]
     Active Substance: TRAMADOL
     Indication: PRODUCT USED FOR UNKNOWN INDICATION
     Route: 065
  7. OLANZAPINE. [Concomitant]
     Active Substance: OLANZAPINE
  8. METHYLAMPHETAMINE [Concomitant]
     Active Substance: AMPHETAMINE
  9. ROXITHROMYCIN [Concomitant]
     Active Substance: ROXITHROMYCIN
  10. AMOXICILLIN. [Concomitant]
     Active Substance: AMOXICILLIN
  11. DIAZEPAM. [Suspect]
     Active Substance: DIAZEPAM
     Indication: OFF LABEL USE
     Route: 048
     Dates: start: 200906
  12. CODEINE [Suspect]
     Active Substance: CODEINE
     Indication: PRODUCT USED FOR UNKNOWN INDICATION
     Route: 065
  13. CEPHALEXIN. [Concomitant]
     Active Substance: CEPHALEXIN

REACTIONS (10)
  - Respiratory depression [Fatal]
  - Overdose [Fatal]
  - Impaired self-care [Unknown]
  - Pneumonia [Fatal]
  - Bipolar disorder [Unknown]
  - Drug dependence [Unknown]
  - Drug interaction [Fatal]
  - Asthma [Unknown]
  - Lower respiratory tract infection [Unknown]
  - Off label use [Unknown]
